FAERS Safety Report 9862635 (Version 1)
Quarter: 2014Q1

REPORT INFORMATION
  Report Type: Spontaneous
  Country: GB (occurrence: None)
  Receive Date: 20140130
  Receipt Date: 20140130
  Transmission Date: 20141002
  Serious: Yes (Death)
  Sender: FDA-Public Use
  Company Number: 2014-000170

PATIENT
  Age: 70 Year
  Sex: Male

DRUGS (1)
  1. DORYX [Suspect]
     Route: 048

REACTIONS (5)
  - Hepatotoxicity [None]
  - Shock [None]
  - Jaundice [None]
  - Encephalopathy [None]
  - Coagulopathy [None]
